FAERS Safety Report 7633055-1 (Version None)
Quarter: 2011Q3

REPORT INFORMATION
  Report Type: 
  Country: None (occurrence: None)
  Receive Date: 20110725
  Receipt Date: 20110719
  Transmission Date: 20111222
  Serious: Yes (Death, Other)
  Sender: FDA-Public Use
  Company Number: PHHY2011SI64990

PATIENT
  Age: 69 Year
  Sex: Male

DRUGS (5)
  1. TERTENSIF - SLOW RELEASE [Concomitant]
     Dosage: 1.5 MG, UNK
     Dates: start: 20100315
  2. ASPIRIN [Concomitant]
  3. ALISKIREN [Suspect]
     Dosage: 150 MG, QD
     Dates: start: 20100310
  4. PRENESSA [Concomitant]
     Dosage: 8 MG, UNK
     Dates: start: 20100316
  5. EDEMID [Concomitant]
     Dosage: 40 MG, UNK

REACTIONS (1)
  - CEREBROVASCULAR DISORDER [None]
